FAERS Safety Report 22057452 (Version 2)
Quarter: 2023Q1

REPORT INFORMATION
  Report Type: Report from Study
  Country: US (occurrence: US)
  Receive Date: 20230303
  Receipt Date: 20230307
  Transmission Date: 20230417
  Serious: No
  Sender: FDA-Public Use
  Company Number: US-002147023-NVSC2023US043294

PATIENT
  Sex: Male

DRUGS (2)
  1. METHOTREXATE [Suspect]
     Active Substance: METHOTREXATE
     Indication: Psoriasis
     Dosage: UNK
     Route: 065
  2. COSENTYX [Suspect]
     Active Substance: SECUKINUMAB
     Indication: Psoriasis
     Dosage: 300 MG, QMO, EVERY 4 WEEKS
     Route: 058
     Dates: start: 202210

REACTIONS (7)
  - Dermatitis psoriasiform [Unknown]
  - Rash erythematous [Unknown]
  - Nail pitting [Unknown]
  - Rash [Unknown]
  - Erythema [Unknown]
  - Inflammation [Unknown]
  - Drug ineffective [Unknown]
